FAERS Safety Report 9775364 (Version 8)
Quarter: 2014Q2

REPORT INFORMATION
  Report Type: Spontaneous
  Country: US (occurrence: US)
  Receive Date: 20131220
  Receipt Date: 20140523
  Transmission Date: 20141212
  Serious: Yes (Hospitalization, Other)
  Sender: FDA-Public Use
  Company Number: US-MERCK-1312USA006915

PATIENT
  Sex: Female
  Weight: 71.66 kg

DRUGS (6)
  1. FOSAMAX [Suspect]
     Indication: OSTEOPENIA
     Dosage: 70 MG, QW
     Route: 048
     Dates: start: 20010214, end: 20110111
  2. ALENDRONATE SODIUM [Suspect]
     Dosage: 70 MG, UNK
     Route: 048
     Dates: end: 20110511
  3. VITAMINS (UNSPECIFIED) [Concomitant]
     Dosage: 1 DF, QD
     Dates: start: 1998
  4. ZOLOFT [Concomitant]
     Indication: DEPRESSION
     Dosage: 100 MG, QD
     Route: 048
     Dates: start: 1995
  5. ADVAIR [Concomitant]
     Indication: ASTHMA
     Dosage: UNK
     Dates: start: 2005
  6. CALCIUM (UNSPECIFIED) [Concomitant]
     Indication: OSTEOPENIA
     Dosage: UNK
     Dates: start: 2004

REACTIONS (38)
  - Femur fracture [Recovered/Resolved]
  - Intramedullary rod insertion [Unknown]
  - Bone graft [Unknown]
  - Biopsy bone [Unknown]
  - Device failure [Unknown]
  - Bone operation [Unknown]
  - Removal of internal fixation [Unknown]
  - Muscle operation [Unknown]
  - Low turnover osteopathy [Unknown]
  - Depression [Not Recovered/Not Resolved]
  - Anxiety [Not Recovered/Not Resolved]
  - Dental caries [Unknown]
  - Wrist fracture [Unknown]
  - Fall [Unknown]
  - Hypertension [Unknown]
  - Hypothyroidism [Unknown]
  - Bipolar disorder [Unknown]
  - Vertebral foraminal stenosis [Unknown]
  - Sciatica [Unknown]
  - Coagulopathy [Unknown]
  - Foot fracture [Unknown]
  - Impaired healing [Unknown]
  - Nasal polypectomy [Unknown]
  - Intraocular lens implant [Unknown]
  - Intraocular lens implant [Unknown]
  - Rotator cuff syndrome [Unknown]
  - Intervertebral disc protrusion [Unknown]
  - Intervertebral disc protrusion [Unknown]
  - Bursitis [Unknown]
  - Arthropathy [Unknown]
  - Bursitis [Unknown]
  - Rotator cuff syndrome [Unknown]
  - Bursitis [Unknown]
  - Cataract operation [Unknown]
  - Osteoarthritis [Unknown]
  - Spinal osteoarthritis [Unknown]
  - Intervertebral disc protrusion [Unknown]
  - Gastrooesophageal reflux disease [Unknown]
